FAERS Safety Report 12779296 (Version 3)
Quarter: 2016Q3

REPORT INFORMATION
  Report Type: Spontaneous
  Country: US (occurrence: US)
  Receive Date: 20160926
  Receipt Date: 20160929
  Transmission Date: 20161109
  Serious: Yes (Hospitalization, Other)
  Sender: FDA-Public Use
  Company Number: US-BRISTOL-MYERS SQUIBB COMPANY-BMS-2016-078387

PATIENT
  Age: 57 Year
  Sex: Male

DRUGS (2)
  1. THORAZINE [Concomitant]
     Active Substance: CHLORPROMAZINE
     Indication: PRODUCT USED FOR UNKNOWN INDICATION
     Dosage: 200 MG, QHS
     Route: 065
  2. ABILIFY [Suspect]
     Active Substance: ARIPIPRAZOLE
     Indication: SCHIZOPHRENIA
     Dosage: 30 MG, QD
     Route: 065
     Dates: start: 20160315

REACTIONS (5)
  - Hospitalisation [Unknown]
  - Abnormal behaviour [Unknown]
  - Treatment noncompliance [Unknown]
  - Aggression [Unknown]
  - Judgement impaired [Unknown]

NARRATIVE: CASE EVENT DATE: 20160818
